FAERS Safety Report 8913820 (Version 1)
Quarter: 2012Q4

REPORT INFORMATION
  Report Type: 
  Country: US (occurrence: US)
  Receive Date: 20121119
  Receipt Date: 20121119
  Transmission Date: 20130627
  Serious: No
  Sender: FDA-Public Use
  Company Number: US-B.I. PHARMACEUTICALS,INC./RIDGEFIELD-2012-BI-00424BP

PATIENT
  Sex: Female
  Weight: 84 kg

DRUGS (9)
  1. PRADAXA [Suspect]
     Indication: ATRIAL FIBRILLATION
     Dosage: 300 mg
     Route: 048
     Dates: start: 201209
  2. LEVOTHYROXINE [Concomitant]
     Indication: HYPOTHYROIDISM
     Dosage: 100 mcg
     Route: 048
     Dates: start: 2002
  3. FUROSEMIDE [Concomitant]
     Indication: OEDEMA PERIPHERAL
     Dosage: 40 mg
     Route: 048
     Dates: start: 2002
  4. VERAPAMIL [Concomitant]
     Indication: HYPERTENSION
     Dosage: 240 mg
     Route: 048
     Dates: start: 2002
  5. FAMOTIDINE [Concomitant]
     Indication: GASTROOESOPHAGEAL REFLUX DISEASE
     Dosage: 20 mg
     Route: 048
     Dates: start: 2002
  6. METOPROLOL [Concomitant]
     Indication: HYPERTENSION
     Dosage: 50 mg
     Route: 048
     Dates: start: 201209
  7. NORTRIPTYLINE [Concomitant]
     Indication: PAIN
     Dosage: 10 mg
     Route: 048
     Dates: start: 201209
  8. MECLIZINE [Concomitant]
     Indication: VERTIGO
     Dosage: 50 mg
     Route: 048
     Dates: start: 2002
  9. OMEPRAZOLE [Concomitant]
     Indication: GASTROOESOPHAGEAL REFLUX DISEASE
     Dosage: 20 mg
     Route: 048
     Dates: start: 2002

REACTIONS (2)
  - Fibromyalgia [Not Recovered/Not Resolved]
  - Muscle spasms [Not Recovered/Not Resolved]
